FAERS Safety Report 7651286-1 (Version None)
Quarter: 2011Q3

REPORT INFORMATION
  Report Type: 
  Country: None (occurrence: None)
  Receive Date: 20110802
  Receipt Date: 20110720
  Transmission Date: 20111222
  Serious: Yes (Other)
  Sender: FDA-Public Use
  Company Number: US-ASTRAZENECA-2008UW00664

PATIENT
  Age: 12529 Day
  Sex: Female
  Weight: 76.2 kg

DRUGS (20)
  1. SEROQUEL [Suspect]
     Indication: BIPOLAR DISORDER
     Dosage: 25, 100, 300 MG
     Route: 048
     Dates: start: 20050502
  2. HALDOL [Concomitant]
     Dates: start: 20070101
  3. ATARAX [Concomitant]
     Indication: ANXIETY
     Route: 048
     Dates: start: 20050503
  4. CLONAZEPAM [Concomitant]
     Dates: start: 20061108
  5. SEROQUEL [Suspect]
     Dosage: 100MG, 300MG, 400MG
     Route: 048
     Dates: start: 20061001, end: 20070701
  6. SEROQUEL [Suspect]
     Dosage: 100-300MG
     Route: 048
     Dates: start: 20061106
  7. ATIVAN [Concomitant]
     Route: 048
     Dates: start: 20050502
  8. SEROQUEL [Suspect]
     Indication: BIPOLAR I DISORDER
     Dosage: 25, 100, 300 MG
     Route: 048
     Dates: start: 20050502
  9. SEROQUEL [Suspect]
     Dosage: 100MG, 300MG, 400MG
     Route: 048
     Dates: start: 20061001, end: 20070701
  10. SEROQUEL [Suspect]
     Dosage: 100-300MG
     Route: 048
     Dates: start: 20061106
  11. EFFEXOR [Concomitant]
     Route: 048
     Dates: start: 20050502
  12. HALDOL [Concomitant]
     Dates: start: 20050503
  13. XANAX [Concomitant]
     Dates: start: 20050503
  14. RISPERDAL [Concomitant]
     Dates: start: 20050101
  15. LEXAPRO [Concomitant]
     Route: 048
     Dates: start: 20050503
  16. RESTORIL [Concomitant]
     Indication: SLEEP DISORDER
     Dates: start: 20050502
  17. MOTRIN [Concomitant]
     Dates: start: 20051212
  18. PAXIL [Concomitant]
     Dates: start: 20050504
  19. AMBIEN [Concomitant]
     Dates: start: 20050504
  20. VALIUM [Concomitant]
     Dates: start: 20050503

REACTIONS (2)
  - DIABETIC NEUROPATHY [None]
  - DIABETES MELLITUS [None]
